FAERS Safety Report 12277561 (Version 2)
Quarter: 2016Q2

REPORT INFORMATION
  Report Type: Report from Study
  Country: CA (occurrence: CA)
  Receive Date: 20160418
  Receipt Date: 20160601
  Transmission Date: 20160815
  Serious: Yes (Death)
  Sender: FDA-Public Use
  Company Number: CA-HLSUS-2016-CA-000013

PATIENT
  Sex: Male
  Weight: 148 kg

DRUGS (4)
  1. CRESTOR [Concomitant]
     Active Substance: ROSUVASTATIN CALCIUM
     Dosage: 10 MG PO
     Route: 048
  2. RISPERIDONE. [Concomitant]
     Active Substance: RISPERIDONE
     Dosage: 4 MG BEDTIME
  3. CLONAZEPAM. [Concomitant]
     Active Substance: CLONAZEPAM
     Dosage: 0.5 MG PO
     Route: 048
  4. CLOZARIL [Suspect]
     Active Substance: CLOZAPINE
     Indication: SCHIZOPHRENIA
     Dosage: 200 MG
     Route: 048
     Dates: start: 20100521

REACTIONS (2)
  - Weight increased [Unknown]
  - Sleep apnoea syndrome [None]
